FAERS Safety Report 4668982-0 (Version None)
Quarter: 2005Q2

REPORT INFORMATION
  Report Type: 
  Country: None (occurrence: None)
  Receive Date: 20050523
  Receipt Date: 20050512
  Transmission Date: 20051028
  Serious: Yes (Hospitalization)
  Sender: FDA-Public Use
  Company Number: FR-GLAXOSMITHKLINE-B0380821A

PATIENT
  Age: 36 Year
  Sex: Female

DRUGS (3)
  1. TRIZIVIR [Suspect]
     Indication: HIV INFECTION
     Dosage: 1UNIT TWICE PER DAY
     Route: 048
     Dates: start: 20010615, end: 20050309
  2. PEGASYS [Suspect]
     Dosage: 1UNIT UNKNOWN
     Route: 058
     Dates: start: 20041110, end: 20050318
  3. COPEGUS [Suspect]
     Dosage: 600MG PER DAY
     Route: 048
     Dates: start: 20041110, end: 20050318

REACTIONS (4)
  - ANAEMIA [None]
  - GENERAL PHYSICAL HEALTH DETERIORATION [None]
  - PANCYTOPENIA [None]
  - PYREXIA [None]
